FAERS Safety Report 13974008 (Version 8)
Quarter: 2021Q1

REPORT INFORMATION
  Report Type: Report from Study
  Country: US (occurrence: US)
  Receive Date: 20170914
  Receipt Date: 20210201
  Transmission Date: 20210419
  Serious: Yes (Hospitalization, Other)
  Sender: FDA-Public Use
  Company Number: US-ASTELLAS-2017US003780

PATIENT
  Age: 59 Year
  Sex: Male

DRUGS (3)
  1. ENZALUTAMIDE [Suspect]
     Active Substance: ENZALUTAMIDE
     Route: 048
     Dates: start: 201701
  2. ENZALUTAMIDE [Suspect]
     Active Substance: ENZALUTAMIDE
     Route: 048
     Dates: start: 20190118
  3. ENZALUTAMIDE [Suspect]
     Active Substance: ENZALUTAMIDE
     Indication: HORMONE-REFRACTORY PROSTATE CANCER
     Route: 048
     Dates: start: 20160812, end: 201612

REACTIONS (18)
  - Renal failure [Unknown]
  - Blood glucose increased [Unknown]
  - Micturition urgency [Unknown]
  - Dyspnoea [Unknown]
  - Amnesia [Recovering/Resolving]
  - Cystitis [Unknown]
  - Dysuria [Unknown]
  - Viral infection [Unknown]
  - Product availability issue [Unknown]
  - Weight increased [Not Recovered/Not Resolved]
  - Cardiac failure [Unknown]
  - Arthritis [Not Recovered/Not Resolved]
  - Myocardial infarction [Unknown]
  - Blood pressure increased [Unknown]
  - Gait disturbance [Unknown]
  - Headache [Recovered/Resolved]
  - Memory impairment [Unknown]
  - Pulmonary mass [Unknown]

NARRATIVE: CASE EVENT DATE: 201612
